FAERS Safety Report 10262057 (Version 1)
Quarter: 2014Q2

REPORT INFORMATION
  Report Type: Spontaneous
  Country: ES (occurrence: ES)
  Receive Date: 20140626
  Receipt Date: 20140626
  Transmission Date: 20141212
  Serious: Yes (Other)
  Sender: FDA-Public Use
  Company Number: ES-AMGEN INC.-ESPSP2014046621

PATIENT
  Age: 75 Year
  Sex: Female

DRUGS (3)
  1. PROLIA [Suspect]
     Indication: PRODUCT USED FOR UNKNOWN INDICATION
     Dosage: UNK
     Route: 065
     Dates: start: 201312
  2. PRAVASTATINA [Concomitant]
     Indication: ARTERIOSCLEROSIS
  3. CARVEDILOL [Concomitant]
     Indication: TENSION

REACTIONS (2)
  - Fracture delayed union [Not Recovered/Not Resolved]
  - Tooth fracture [Unknown]
